FAERS Safety Report 4536693-8 (Version None)
Quarter: 2004Q4

REPORT INFORMATION
  Report Type: 
  Country: None (occurrence: None)
  Receive Date: 20041223
  Receipt Date: 20041217
  Transmission Date: 20050328
  Serious: Yes (Hospitalization)
  Sender: FDA-Public Use
  Company Number: US-AMGEN-US100438

PATIENT
  Sex: Female
  Weight: 54.5 kg

DRUGS (9)
  1. ARANESP [Suspect]
     Indication: RENAL FAILURE CHRONIC
     Route: 058
     Dates: start: 20030901
  2. PEPCID [Concomitant]
     Dates: start: 20030601
  3. ASPIRIN [Concomitant]
     Dates: start: 20030601
  4. PROGRAF [Concomitant]
     Dates: start: 20000801
  5. MEDROL [Concomitant]
     Dates: start: 20000801
  6. VASOTEC [Concomitant]
     Dates: start: 20030601
  7. CLONIDINE [Concomitant]
     Dates: start: 20030601
  8. LABETALOL [Concomitant]
     Dates: start: 20030601
  9. CELLCEPT [Concomitant]
     Dates: start: 20000801

REACTIONS (4)
  - ANAEMIA [None]
  - APLASIA PURE RED CELL [None]
  - THERAPEUTIC RESPONSE DECREASED [None]
  - TREATMENT NONCOMPLIANCE [None]
